FAERS Safety Report 11146594 (Version 1)
Quarter: 2015Q2

REPORT INFORMATION
  Report Type: Other
  Country: TW (occurrence: TW)
  Receive Date: 20150528
  Receipt Date: 20150528
  Transmission Date: 20150821
  Serious: Yes (Death, Hospitalization)
  Sender: FDA-Public Use
  Company Number: TW-ENDO PHARMACEUTICALS INC-2015-001002

PATIENT
  Age: 48 Year
  Sex: Male

DRUGS (1)
  1. RHEUMATREX [Suspect]
     Active Substance: METHOTREXATE SODIUM
     Indication: PSORIASIS
     Route: 048

REACTIONS (9)
  - Pancytopenia [Unknown]
  - Pseudomonas infection [Unknown]
  - Renal failure [Unknown]
  - Diarrhoea [Unknown]
  - Toxicity to various agents [Recovering/Resolving]
  - Electrocardiogram ST segment elevation [Not Recovered/Not Resolved]
  - Ventricular arrhythmia [Fatal]
  - Febrile neutropenia [Unknown]
  - Shock [Unknown]
